FAERS Safety Report 17931263 (Version 2)
Quarter: 2020Q3

REPORT INFORMATION
  Report Type: Spontaneous
  Country: CN (occurrence: CN)
  Receive Date: 20200623
  Receipt Date: 20200706
  Transmission Date: 20201103
  Serious: Yes (Other)
  Sender: FDA-Public Use
  Company Number: CN-GILEAD-2020-0473428

PATIENT
  Age: 70 Year
  Sex: Male

DRUGS (3)
  1. AMLODIPINE BESYLATE. [Concomitant]
     Active Substance: AMLODIPINE BESYLATE
     Indication: HYPERTENSION
  2. VEMLIDY [Suspect]
     Active Substance: TENOFOVIR ALAFENAMIDE FUMARATE
     Indication: HEPATITIS B
     Dosage: 25 MG, QD
     Route: 048
     Dates: start: 20200530
  3. INSULIN [Concomitant]
     Active Substance: INSULIN NOS
     Indication: DIABETES MELLITUS

REACTIONS (3)
  - Alanine aminotransferase increased [Not Recovered/Not Resolved]
  - Blood bilirubin increased [Not Recovered/Not Resolved]
  - Bilirubin conjugated increased [Recovered/Resolved]

NARRATIVE: CASE EVENT DATE: 20200604
